FAERS Safety Report 25794681 (Version 3)
Quarter: 2025Q3

REPORT INFORMATION
  Report Type: Report from Study
  Country: US (occurrence: US)
  Receive Date: 20250912
  Receipt Date: 20250922
  Transmission Date: 20251020
  Serious: Yes (Other)
  Sender: ABBVIE
  Company Number: US-ABBVIE-6456222

PATIENT
  Age: 77 Year
  Sex: Male
  Weight: 64 kg

DRUGS (3)
  1. SKYRIZI [Suspect]
     Active Substance: RISANKIZUMAB-RZAA
     Indication: Psoriasis
     Route: 058
     Dates: start: 20250122
  2. ENALAPRIL [Concomitant]
     Active Substance: ENALAPRIL
     Indication: Blood pressure measurement
  3. ZYRTEC [Concomitant]
     Active Substance: CETIRIZINE HYDROCHLORIDE
     Indication: Hypersensitivity

REACTIONS (8)
  - Rectal cancer [Not Recovered/Not Resolved]
  - Skin cancer [Recovered/Resolved]
  - Wound infection [Not Recovered/Not Resolved]
  - Sitting disability [Recovering/Resolving]
  - Lymphadenopathy [Recovering/Resolving]
  - Pain [Recovering/Resolving]
  - Tenderness [Recovering/Resolving]
  - Burning sensation [Recovering/Resolving]

NARRATIVE: CASE EVENT DATE: 20250101
